FAERS Safety Report 9478476 (Version 2)
Quarter: 2013Q3

REPORT INFORMATION
  Report Type: Spontaneous
  Country: US (occurrence: US)
  Receive Date: 20130827
  Receipt Date: 20130830
  Transmission Date: 20140515
  Serious: No
  Sender: FDA-Public Use
  Company Number: US-UCBSA-095966

PATIENT
  Sex: Male

DRUGS (1)
  1. KEPPRA [Suspect]
     Dosage: 2 DOSES OF KEPPRA (FIRST DOSE IN MORNING AND SECOND DOSE IN AFTERNOON)
     Dates: start: 2002, end: 2002

REACTIONS (3)
  - Dysstasia [Recovered/Resolved]
  - Somnolence [Recovered/Resolved]
  - Muscular weakness [Recovered/Resolved]
